FAERS Safety Report 8273661-7 (Version None)
Quarter: 2012Q2

REPORT INFORMATION
  Report Type: 
  Country: None (occurrence: None)
  Receive Date: 20120409
  Receipt Date: 20120409
  Transmission Date: 20120825
  Serious: No
  Sender: FDA-Public Use
  Company Number: None

PATIENT
  Age: 72 Year
  Sex: Male

DRUGS (6)
  1. GABAPENTIN [Concomitant]
  2. TAMSULOSIN HCL [Concomitant]
  3. MIRTAZAPINE [Concomitant]
  4. MEGEATEROL SUSPENSION [Concomitant]
  5. PERCOCET [Concomitant]
  6. REVLIMID [Suspect]
     Indication: MYELODYSPLASTIC SYNDROME
     Dosage: 10MG DAILY ORALLY
     Route: 048
     Dates: start: 20120321, end: 20120328

REACTIONS (1)
  - RASH [None]
